FAERS Safety Report 16642435 (Version 5)
Quarter: 2019Q3

REPORT INFORMATION
  Report Type: Report from Study
  Country: JP (occurrence: JP)
  Receive Date: 20190729
  Receipt Date: 20190902
  Transmission Date: 20191004
  Serious: Yes (Death, Hospitalization, Other)
  Sender: FDA-Public Use
  Company Number: JP-ASTELLAS-2018JP002847

PATIENT
  Age: 81 Year
  Sex: Female
  Weight: 45 kg

DRUGS (37)
  1. RESTAMIN                           /00000401/ [Concomitant]
     Active Substance: DIPHENHYDRAMINE
     Indication: SKIN DISORDER PROPHYLAXIS
     Dosage: ADEQUATE DOSE, AT APPROPRIATE TIME
     Route: 061
     Dates: start: 2015, end: 20170801
  2. NAUZELIN [Concomitant]
     Active Substance: DOMPERIDONE
     Indication: ENTEROCOLITIS
     Dosage: UNK UNK, AS NEEDED
     Route: 054
     Dates: start: 20180208, end: 20180212
  3. NAUZELIN [Concomitant]
     Active Substance: DOMPERIDONE
     Indication: ILEUS
  4. HIRUDOID                           /00723701/ [Concomitant]
     Active Substance: PENTOSAN POLYSULFATE SODIUM
     Indication: PROPHYLAXIS
     Dosage: UNK UNK, UNKNOWN FREQ.
     Route: 061
     Dates: start: 20181024
  5. MUCOSTA [Concomitant]
     Active Substance: REBAMIPIDE
     Indication: PROPHYLAXIS AGAINST GASTROINTESTINAL ULCER
     Dosage: UNK UNK, UNKNOWN FREQ.
     Route: 042
     Dates: start: 20190426, end: 20190509
  6. SOLDEM 3A [Concomitant]
     Active Substance: CARBOHYDRATES\POTASSIUM CHLORIDE\SODIUM CHLORIDE\SODIUM LACTATE
     Indication: PNEUMONIA ASPIRATION
     Route: 041
     Dates: start: 20180214, end: 20180305
  7. VITAMEDIN                          /00176001/ [Concomitant]
     Indication: ILEUS
     Dosage: UNK UNK, UNKNOWN FREQ.
     Route: 041
     Dates: start: 20180208, end: 20180208
  8. VITAMEDIN                          /00176001/ [Concomitant]
     Indication: ENTERITIS
  9. CEFTRIAXONE SODIUM HYDRATE [Concomitant]
     Active Substance: CEFTRIAXONE SODIUM
     Indication: ENTERITIS
  10. SOLYUGEN F [Concomitant]
     Active Substance: CALCIUM CHLORIDE\POTASSIUM CHLORIDE\SODIUM ACETATE\SODIUM CHLORIDE
     Indication: ILEUS
     Route: 041
     Dates: start: 20180213, end: 20180214
  11. LEVOFLOXACIN. [Concomitant]
     Active Substance: LEVOFLOXACIN
     Indication: URINARY TRACT INFECTION
     Dosage: UNK UNK, UNKNOWN FREQ.
     Route: 048
     Dates: start: 20190313, end: 20190319
  12. MIYA-BM [Concomitant]
     Active Substance: CLOSTRIDIUM BUTYRICUM SPORES STRAIN M-55
     Indication: LARGE INTESTINE INFECTION
     Dosage: UNK UNK, UNKNOWN FREQ.
     Route: 048
     Dates: start: 20180918, end: 20180923
  13. ASP2215 [Suspect]
     Active Substance: GILTERITINIB
     Route: 048
     Dates: start: 20180314, end: 20190722
  14. AUGMENTIN [Suspect]
     Active Substance: AMOXICILLIN\CLAVULANATE POTASSIUM
     Indication: URINARY TRACT INFECTION
     Dosage: UNK, UNKNOWN FREQ.
     Route: 048
     Dates: start: 20190313, end: 20190318
  15. SOLYUGEN F [Concomitant]
     Active Substance: CALCIUM CHLORIDE\POTASSIUM CHLORIDE\SODIUM ACETATE\SODIUM CHLORIDE
     Indication: PNEUMONIA ASPIRATION
  16. TAZOPIPE [Concomitant]
     Active Substance: PIPERACILLIN SODIUM\TAZOBACTAM SODIUM
     Indication: PNEUMONIA ASPIRATION
     Route: 041
     Dates: start: 20180213, end: 20180215
  17. CARBOCISTEINE [Concomitant]
     Active Substance: CARBOCYSTEINE
     Indication: PRODUCTIVE COUGH
     Dosage: UNK UNK, UNKNOWN FREQ.
     Route: 048
  18. ASP2215 [Suspect]
     Active Substance: GILTERITINIB
     Indication: ACUTE MYELOID LEUKAEMIA
     Route: 048
     Dates: start: 20170703, end: 20180213
  19. NORVASC [Concomitant]
     Active Substance: AMLODIPINE BESYLATE
     Indication: HYPERTENSION
     Route: 048
     Dates: start: 2014, end: 20190722
  20. CEFTRIAXONE SODIUM HYDRATE [Concomitant]
     Active Substance: CEFTRIAXONE SODIUM
     Indication: ILEUS
     Dosage: UNK UNK, UNKNOWN FREQ.
     Route: 041
     Dates: start: 20180208, end: 20180208
  21. GASTER [Concomitant]
     Active Substance: FAMOTIDINE
     Indication: PROPHYLAXIS AGAINST GASTROINTESTINAL ULCER
     Route: 041
     Dates: start: 20180214, end: 20180301
  22. OLOPATADINE HYDROCHLORIDE. [Concomitant]
     Active Substance: OLOPATADINE HYDROCHLORIDE
     Indication: DRUG ERUPTION
     Dosage: UNK UNK, UNKNOWN FREQ.
     Route: 048
     Dates: start: 20190318, end: 20190324
  23. RESTAMIN                           /00000401/ [Concomitant]
     Active Substance: DIPHENHYDRAMINE
     Indication: DERMATITIS
     Dosage: ADEQUATE DOSE, AT APPROPRIATE TIME
     Route: 061
     Dates: start: 20170814
  24. SOLDEM 3A [Concomitant]
     Active Substance: CARBOHYDRATES\POTASSIUM CHLORIDE\SODIUM CHLORIDE\SODIUM LACTATE
     Indication: ILEUS
     Dosage: UNK UNK, UNKNOWN FREQ.
     Route: 041
     Dates: start: 20180208, end: 20180208
  25. SOLDEM 3A [Concomitant]
     Active Substance: CARBOHYDRATES\POTASSIUM CHLORIDE\SODIUM CHLORIDE\SODIUM LACTATE
     Indication: ENTERITIS
     Dosage: UNK UNK, UNKNOWN FREQ.
     Route: 041
     Dates: start: 20180213, end: 20180214
  26. ACETAMINOPHEN. [Concomitant]
     Active Substance: ACETAMINOPHEN
     Indication: PNEUMONIA ASPIRATION
     Dosage: UNK UNK, UNKNOWN FREQ.
     Route: 041
     Dates: start: 20180213, end: 20180222
  27. MEDICON                            /00048102/ [Concomitant]
     Active Substance: DEXTROMETHORPHAN HYDROBROMIDE
     Indication: COUGH
     Dosage: UNK UNK, UNKNOWN FREQ.
     Route: 048
     Dates: start: 20190703, end: 20190722
  28. PARIET [Concomitant]
     Active Substance: RABEPRAZOLE SODIUM
     Indication: PROPHYLAXIS AGAINST GASTROINTESTINAL ULCER
     Route: 048
     Dates: start: 20140816, end: 20190722
  29. RESTAMIN                           /00000401/ [Concomitant]
     Active Substance: DIPHENHYDRAMINE
     Indication: RASH
     Dosage: ADEQUATE DOSE, AT APPROPRIATE TIME
     Route: 061
     Dates: start: 20170802, end: 20170813
  30. SOLYUGEN F [Concomitant]
     Active Substance: CALCIUM CHLORIDE\POTASSIUM CHLORIDE\SODIUM ACETATE\SODIUM CHLORIDE
     Indication: FLUID REPLACEMENT
  31. REBAMIPIDE [Concomitant]
     Active Substance: REBAMIPIDE
     Indication: ABDOMINAL PAIN UPPER
     Dosage: UNK UNK, UNKNOWN FREQ.
     Route: 065
     Dates: start: 20180205
  32. SENNOSIDE                          /00571902/ [Concomitant]
     Active Substance: SENNOSIDES A AND B
     Indication: CONSTIPATION
     Dosage: UNK UNK, UNKNOWN FREQ.
     Route: 065
     Dates: start: 20180207
  33. SOLDEM 3A [Concomitant]
     Active Substance: CARBOHYDRATES\POTASSIUM CHLORIDE\SODIUM CHLORIDE\SODIUM LACTATE
     Indication: FLUID REPLACEMENT
  34. CALONAL [Concomitant]
     Active Substance: ACETAMINOPHEN
     Indication: LARGE INTESTINE INFECTION
     Dosage: UNK UNK, UNKNOWN FREQ.
     Route: 048
     Dates: start: 20180918, end: 20180918
  35. LEVOFLOXACIN. [Concomitant]
     Active Substance: LEVOFLOXACIN
     Indication: LARGE INTESTINE INFECTION
     Dosage: UNK UNK, UNKNOWN FREQ.
     Route: 048
     Dates: start: 20180918, end: 20180922
  36. LOXONIN [Concomitant]
     Active Substance: LOXOPROFEN SODIUM
     Indication: CERVICAL RADICULOPATHY
     Dosage: UNK UNK, UNKNOWN FREQ.
     Route: 048
     Dates: start: 20190426, end: 20190509
  37. METHYCOBAL [Concomitant]
     Active Substance: METHYLCOBALAMIN
     Indication: CERVICAL RADICULOPATHY
     Dosage: UNK UNK, UNKNOWN FREQ.
     Route: 048
     Dates: start: 20190510, end: 20190524

REACTIONS (13)
  - Aspartate aminotransferase increased [Not Recovered/Not Resolved]
  - Platelet count decreased [Not Recovered/Not Resolved]
  - Alanine aminotransferase increased [Not Recovered/Not Resolved]
  - Ileus [Recovered/Resolved]
  - White blood cell count decreased [Not Recovered/Not Resolved]
  - Neutrophil count decreased [Not Recovered/Not Resolved]
  - Duodenal perforation [Fatal]
  - Pneumonia aspiration [Recovered/Resolved]
  - Urinary tract infection [Recovered/Resolved]
  - Cervical radiculopathy [Recovering/Resolving]
  - Blood thyroid stimulating hormone increased [Not Recovered/Not Resolved]
  - Drug eruption [Recovered/Resolved]
  - Blood creatine phosphokinase increased [Not Recovered/Not Resolved]

NARRATIVE: CASE EVENT DATE: 20180213
